FAERS Safety Report 20158028 (Version 2)
Quarter: 2021Q4

REPORT INFORMATION
  Report Type: Spontaneous
  Country: US (occurrence: US)
  Receive Date: 20211207
  Receipt Date: 20211218
  Transmission Date: 20220303
  Serious: No
  Sender: FDA-Public Use
  Company Number: US-SA-SAC20211127000543

PATIENT
  Age: 49 Year
  Sex: Male

DRUGS (13)
  1. DUPIXENT [Suspect]
     Active Substance: DUPILUMAB
     Indication: Dermatitis atopic
     Dosage: 300MG, QOW
     Route: 058
  2. ALBUTEROL SULFATE [Concomitant]
     Active Substance: ALBUTEROL SULFATE
     Dosage: 90 UG
  3. CLOBETASOL [Concomitant]
     Active Substance: CLOBETASOL
  4. PREDNISONE [Concomitant]
     Active Substance: PREDNISONE
     Route: 048
  5. NEOMYCIN AND POLYMYXIN B SULFATES AND HYDROCORTISONE [Concomitant]
     Active Substance: HYDROCORTISONE\NEOMYCIN SULFATE\POLYMYXIN B SULFATE
  6. SINGULAIR [Concomitant]
     Active Substance: MONTELUKAST SODIUM
     Route: 048
  7. PLAQUENIL [Concomitant]
     Active Substance: HYDROXYCHLOROQUINE SULFATE
  8. AMITIZA [Concomitant]
     Active Substance: LUBIPROSTONE
     Route: 048
  9. METOPROLOL SUCCINATE [Concomitant]
     Active Substance: METOPROLOL SUCCINATE
  10. DOXYCYCLINE HYCLATE [Concomitant]
     Active Substance: DOXYCYCLINE HYCLATE
  11. ONFI [Concomitant]
     Active Substance: CLOBAZAM
  12. GABITRIL [Concomitant]
     Active Substance: TIAGABINE HYDROCHLORIDE
  13. VIMPAT [Concomitant]
     Active Substance: LACOSAMIDE

REACTIONS (9)
  - Limb discomfort [Unknown]
  - Pain in extremity [Unknown]
  - Dry mouth [Unknown]
  - Malaise [Unknown]
  - Pain [Unknown]
  - Bronchospasm [Unknown]
  - Product use in unapproved indication [Unknown]
  - Therapeutic response shortened [Unknown]
  - Product dose omission issue [Unknown]

NARRATIVE: CASE EVENT DATE: 20211130
